FAERS Safety Report 7052776-5 (Version None)
Quarter: 2010Q4

REPORT INFORMATION
  Report Type: 
  Country: None (occurrence: None)
  Receive Date: 20101014
  Receipt Date: 20101007
  Transmission Date: 20110411
  Serious: Yes (Disabling, Other)
  Sender: FDA-Public Use
  Company Number: 2010SP005483

PATIENT
  Age: 26 Year
  Sex: Female
  Weight: 51.7101 kg

DRUGS (6)
  1. NUVARING [Suspect]
     Indication: PRODUCT USED FOR UNKNOWN INDICATION
     Dosage: VAG
     Route: 067
     Dates: start: 20080101
  2. LOVENOX [Suspect]
     Indication: PULMONARY EMBOLISM
     Dosage: BID;TDER
     Route: 062
     Dates: start: 20080101, end: 20090101
  3. ACETAMINOPHEN [Concomitant]
  4. ADVAIR DISKUS 100/50 [Concomitant]
  5. PROAIR HFA [Concomitant]
  6. RELPAX [Concomitant]

REACTIONS (13)
  - DEPRESSION [None]
  - DRUG EXPOSURE BEFORE PREGNANCY [None]
  - IMMOBILE [None]
  - IMPAIRED WORK ABILITY [None]
  - INJECTION SITE HAEMATOMA [None]
  - INJECTION SITE NODULE [None]
  - INJECTION SITE PAIN [None]
  - INJECTION SITE SWELLING [None]
  - PANIC ATTACK [None]
  - PNEUMONIA [None]
  - PREGNANCY [None]
  - PULMONARY EMBOLISM [None]
  - VASCULAR RUPTURE [None]
